FAERS Safety Report 7303964-1 (Version None)
Quarter: 2011Q1

REPORT INFORMATION
  Report Type: 
  Country: None (occurrence: None)
  Receive Date: 20110221
  Receipt Date: 20110125
  Transmission Date: 20110831
  Serious: No
  Sender: FDA-Public Use
  Company Number: JP-ROCHE-760757

PATIENT
  Age: 60 Year
  Sex: Male

DRUGS (2)
  1. TAMIFLU [Suspect]
     Dosage: DRUG NAME REPORTED: TAMIFLU CAPSULE.
     Route: 048
  2. CALONAL [Concomitant]
     Dosage: FORM: PEORAL AGENT, UNCERTAIN DOSAGE AND A DOSE.
     Route: 048

REACTIONS (2)
  - ACCIDENTAL OVERDOSE [None]
  - HYPOTHERMIA [None]
